FAERS Safety Report 12972648 (Version 1)
Quarter: 2016Q4

REPORT INFORMATION
  Report Type: Spontaneous
  Country: US (occurrence: US)
  Receive Date: 20161124
  Receipt Date: 20161124
  Transmission Date: 20170207
  Serious: Yes (Other)
  Sender: FDA-Public Use
  Company Number: US-CONCORDIA PHARMACEUTICALS INC.-GSH201611-005951

PATIENT
  Age: 14 Year
  Sex: Female

DRUGS (1)
  1. ZONISAMIDE. [Suspect]
     Active Substance: ZONISAMIDE
     Route: 048

REACTIONS (3)
  - Overdose [Recovered/Resolved]
  - Somnolence [Recovered/Resolved]
  - Intracranial pressure increased [Recovered/Resolved]
